FAERS Safety Report 10502138 (Version 4)
Quarter: 2015Q1

REPORT INFORMATION
  Report Type: Spontaneous
  Country: JP (occurrence: JP)
  Receive Date: 20141007
  Receipt Date: 20150119
  Transmission Date: 20150720
  Serious: Yes (Death, Hospitalization)
  Sender: FDA-Public Use
  Company Number: PHHY2011JP33363

PATIENT
  Age: 43 Year
  Sex: Female

DRUGS (5)
  1. PREDNISOLONE. [Suspect]
     Active Substance: PREDNISOLONE
     Indication: PRODUCT USED FOR UNKNOWN INDICATION
     Dosage: 30 MG, QD
     Route: 065
  2. PACLITAXEL. [Suspect]
     Active Substance: PACLITAXEL
     Indication: ADENOCARCINOMA
     Route: 065
  3. GLIVEC [Suspect]
     Active Substance: IMATINIB MESYLATE
     Indication: SYSTEMIC MASTOCYTOSIS
     Dosage: 400 MG, QD
     Route: 048
     Dates: start: 20110408, end: 20110427
  4. DEXAMETHASONE. [Suspect]
     Active Substance: DEXAMETHASONE
     Indication: PRODUCT USED FOR UNKNOWN INDICATION
     Route: 065
  5. CARBOPLATIN. [Suspect]
     Active Substance: CARBOPLATIN
     Indication: ADENOCARCINOMA
     Route: 065

REACTIONS (14)
  - Paraplegia [Unknown]
  - Ascites [Fatal]
  - Drug ineffective [Unknown]
  - Blood lactate dehydrogenase increased [Fatal]
  - Hepatomegaly [Fatal]
  - Systemic mastocytosis [Fatal]
  - Fall [Unknown]
  - Spinal cord compression [Unknown]
  - Myalgia [Unknown]
  - Sepsis [Unknown]
  - Bone marrow failure [Unknown]
  - Dizziness [Recovered/Resolved]
  - Subarachnoid haemorrhage [Unknown]
  - Flushing [Fatal]

NARRATIVE: CASE EVENT DATE: 20110411
